FAERS Safety Report 25803836 (Version 1)
Quarter: 2025Q3

REPORT INFORMATION
  Report Type: Spontaneous
  Country: CN (occurrence: CN)
  Receive Date: 20250915
  Receipt Date: 20250915
  Transmission Date: 20251021
  Serious: Yes (Other)
  Sender: PFIZER
  Company Number: CN-TAKEDA-2025TUS078984

PATIENT
  Sex: Female
  Weight: 66 kg

DRUGS (1)
  1. BRENTUXIMAB VEDOTIN [Suspect]
     Active Substance: BRENTUXIMAB VEDOTIN
     Indication: Blood glucose increased
     Dosage: 4.0 U, TID
     Route: 058
     Dates: start: 20250905, end: 20250905

REACTIONS (2)
  - Rash maculo-papular [Recovered/Resolved]
  - Off label use [Unknown]

NARRATIVE: CASE EVENT DATE: 20250905
